FAERS Safety Report 8546480-1 (Version None)
Quarter: 2012Q3

REPORT INFORMATION
  Report Type: 
  Country: None (occurrence: None)
  Receive Date: 20120727
  Receipt Date: 20120712
  Transmission Date: 20120928
  Serious: Yes (Other)
  Sender: FDA-Public Use
  Company Number: FR-ARROW-2012-12690

PATIENT
  Age: 66 Year
  Sex: Female

DRUGS (2)
  1. PREDNISONE [Suspect]
     Indication: RHEUMATOID VASCULITIS
     Dosage: 7 MG, Q 2 WEEKS
     Route: 048
  2. RITUXIMAB [Suspect]
     Indication: RHEUMATOID VASCULITIS
     Dosage: 1 G, Q 2 WEEKS
     Route: 042

REACTIONS (2)
  - INFECTION [None]
  - FISTULA [None]
